FAERS Safety Report 13716291 (Version 1)
Quarter: 2017Q3

REPORT INFORMATION
  Report Type: Report from Study
  Country: DE (occurrence: DE)
  Receive Date: 20170705
  Receipt Date: 20170705
  Transmission Date: 20171127
  Serious: Yes (Other)
  Sender: FDA-Public Use
  Company Number: DE-SUN PHARMACEUTICAL INDUSTRIES LTD-2017RR-144539

PATIENT

DRUGS (5)
  1. RANITIDINE. [Concomitant]
     Active Substance: RANITIDINE
     Indication: NON-SMALL CELL LUNG CANCER METASTATIC
     Dosage: 50 MG, UNK
     Route: 065
  2. CLEMASTINE [Concomitant]
     Active Substance: CLEMASTINE
     Indication: NON-SMALL CELL LUNG CANCER METASTATIC
     Dosage: 2 MG, UNK
     Route: 065
  3. DEXAMETHASONE. [Concomitant]
     Active Substance: DEXAMETHASONE
     Indication: NON-SMALL CELL LUNG CANCER METASTATIC
     Route: 042
  4. PACLITAXEL. [Suspect]
     Active Substance: PACLITAXEL
     Indication: NON-SMALL CELL LUNG CANCER METASTATIC
     Dosage: 75 MG/M2, ON DAYS 1, 8, AND 15 EVERY 4 WEEKS
     Route: 042
  5. CARBOPLATIN. [Suspect]
     Active Substance: CARBOPLATIN
     Indication: NON-SMALL CELL LUNG CANCER METASTATIC
     Dosage: AUC 3 I.V. OVER 30 MIN WAS ADMINISTERED AFTER PACLITAXEL, ON DAYS 1, 8, AND 15 EVERY 4 WEEKS
     Route: 042

REACTIONS (16)
  - Neuropathy peripheral [Unknown]
  - Diarrhoea [Unknown]
  - Colony stimulating factor therapy [Unknown]
  - Oedema peripheral [Unknown]
  - Disease progression [Unknown]
  - Platelet transfusion [Unknown]
  - Dizziness [Unknown]
  - Infection [Unknown]
  - Condition aggravated [Unknown]
  - Haematotoxicity [Unknown]
  - Fatigue [Unknown]
  - Pyrexia [Unknown]
  - Packed red blood cell transfusion [Unknown]
  - Pneumonia [Unknown]
  - Leukopenia [Unknown]
  - Neutropenia [Unknown]
